FAERS Safety Report 8733747 (Version 4)
Quarter: 2013Q3

REPORT INFORMATION
  Report Type: Spontaneous
  Country: US (occurrence: None)
  Receive Date: 20120803
  Receipt Date: 20130815
  Transmission Date: 20140515
  Serious: Yes (Other)
  Sender: FDA-Public Use
  Company Number: ADR-2012-01278

PATIENT
  Sex: Female

DRUGS (4)
  1. BACLOFEN [Suspect]
     Indication: SPINAL PAIN
  2. BACLOFEN [Suspect]
  3. BUPIVACAINE [Concomitant]
  4. MORPHINE [Concomitant]

REACTIONS (18)
  - Malaise [None]
  - Application site anaesthesia [None]
  - Malaise [None]
  - Pain [None]
  - Nausea [None]
  - Dysgeusia [None]
  - Drug effect decreased [None]
  - Device failure [None]
  - Back pain [None]
  - Neuralgia [None]
  - Device leakage [None]
  - Parosmia [None]
  - Implant site hypoaesthesia [None]
  - Implant site extravasation [None]
  - Device power source issue [None]
  - Feeling abnormal [None]
  - Dysgeusia [None]
  - Feeling abnormal [None]
